FAERS Safety Report 8255981-5 (Version None)
Quarter: 2012Q2

REPORT INFORMATION
  Report Type: 
  Country: None (occurrence: None)
  Receive Date: 20120403
  Receipt Date: 20120320
  Transmission Date: 20120825
  Serious: No
  Sender: FDA-Public Use
  Company Number: US-BAXTER-2012BAX000308

PATIENT
  Sex: Female

DRUGS (2)
  1. GAMMAGARD LIQUID [Suspect]
     Indication: PRIMARY IMMUNODEFICIENCY SYNDROME
     Route: 042
     Dates: start: 20120315, end: 20120315
  2. GAMMAGARD LIQUID [Suspect]
     Route: 042
     Dates: start: 20120315, end: 20120315

REACTIONS (3)
  - INFLUENZA LIKE ILLNESS [None]
  - INCORRECT DRUG ADMINISTRATION RATE [None]
  - HEADACHE [None]
